APPROVED DRUG PRODUCT: TYLOX
Active Ingredient: ACETAMINOPHEN; OXYCODONE HYDROCHLORIDE
Strength: 500MG;5MG
Dosage Form/Route: CAPSULE;ORAL
Application: A088790 | Product #001
Applicant: JANSSEN PHARMACEUTICALS INC
Approved: Dec 12, 1984 | RLD: No | RS: No | Type: DISCN